FAERS Safety Report 10249602 (Version 4)
Quarter: 2014Q3

REPORT INFORMATION
  Report Type: Spontaneous
  Country: US (occurrence: US)
  Receive Date: 20140620
  Receipt Date: 20140912
  Transmission Date: 20150326
  Serious: Yes (Hospitalization, Other)
  Sender: FDA-Public Use
  Company Number: US-PFIZER INC-2014165769

PATIENT
  Age: 70 Year
  Sex: Male

DRUGS (4)
  1. SUTENT [Suspect]
     Active Substance: SUNITINIB MALATE
     Indication: METASTATIC RENAL CELL CARCINOMA
     Dosage: 50 MG, CYCLIC (28 DAYS ON, 14 DAYS OFF)
     Route: 048
     Dates: start: 20140524, end: 201406
  2. NEURONTIN [Concomitant]
     Active Substance: GABAPENTIN
     Dosage: UNK
  3. ZANTAC [Concomitant]
     Active Substance: RANITIDINE HYDROCHLORIDE
     Dosage: UNK
  4. MORPHINE [Concomitant]
     Active Substance: MORPHINE
     Dosage: UNK

REACTIONS (18)
  - Ascites [Unknown]
  - Hypophagia [Unknown]
  - Pleural effusion [Unknown]
  - Tremor [Unknown]
  - Ageusia [Unknown]
  - Asthenia [Recovering/Resolving]
  - Chromaturia [Unknown]
  - Metastatic renal cell carcinoma [Unknown]
  - Lip dry [Unknown]
  - Fluid intake reduced [Unknown]
  - Dyspnoea [Recovering/Resolving]
  - Hallucination [Unknown]
  - Disease progression [Unknown]
  - Cardiac disorder [Unknown]
  - Fatigue [Recovering/Resolving]
  - Pericardial effusion [Unknown]
  - Hydrocholecystis [Unknown]
  - Head injury [Unknown]

NARRATIVE: CASE EVENT DATE: 2014
